FAERS Safety Report 8771935 (Version 2)
Quarter: 2012Q4

REPORT INFORMATION
  Report Type: 
  Country: AU (occurrence: AU)
  Receive Date: 20120905
  Receipt Date: 20121008
  Transmission Date: 20130627
  Serious: Yes (Death, Other)
  Sender: FDA-Public Use
  Company Number: PHHY2012AU077050

PATIENT
  Age: 80 Year
  Sex: Female

DRUGS (25)
  1. ACLASTA [Suspect]
     Indication: OSTEOPOROTIC FRACTURE
     Dosage: 5 mg, UNK
     Route: 042
     Dates: start: 20100924
  2. ACLASTA [Suspect]
     Dosage: 5 mg, UNK
     Route: 042
     Dates: start: 20110927
  3. ALDACTONE [Concomitant]
     Dosage: 25 mg, UNK
  4. APIDRA [Concomitant]
     Dosage: 100 U/ml, UNK
  5. ATROVENT [Concomitant]
     Dosage: 21 mcg
  6. BICOR [Concomitant]
     Dosage: 10 mg, UNK
  7. COUMADIN [Concomitant]
     Dosage: 1 mg, UNK
  8. DOTHEP [Concomitant]
     Dosage: 75 mg, UNK
  9. FENTANYL [Concomitant]
     Dosage: 50 mcg
  10. LANTUS [Concomitant]
     Dosage: 100 U/ml, UNK
  11. LASIX [Concomitant]
     Dosage: 40 mg, UNK
  12. LUTEINE [Concomitant]
     Dosage: 40 mg, UNK
  13. MACU-VISION [Concomitant]
     Dosage: 250 mg, UNK
  14. NITROLINGUAL [Concomitant]
     Dosage: 400 mcg
  15. OSTELIN [Concomitant]
     Dosage: 1000 U, UNK
  16. PANAMAX [Concomitant]
     Dosage: 500 mg, UNK
  17. PREDNISOLONE [Concomitant]
     Dosage: 5 mg, UNK
  18. QVAR [Concomitant]
     Dosage: 100 mcg
  19. SERETIDE [Concomitant]
     Dosage: 500 mcg
  20. SOMAC [Concomitant]
     Dosage: 40 mg, UNK
  21. SYSTANE (PROPYLENE GLYCOL/MACROGOL) [Concomitant]
     Dosage: 0.4 %, UNK
  22. GLYCYOL [Concomitant]
     Dosage: 0.4 %, UNK
  23. TRANSDERM NITRO [Concomitant]
     Dosage: 500 mg, UNK
  24. VENTOLINE [Concomitant]
     Dosage: 2 DF, UNK
  25. XALATAN [Concomitant]
     Dosage: 50 mcg

REACTIONS (8)
  - Multi-organ failure [Fatal]
  - Ischaemic cardiomyopathy [Fatal]
  - Cardiac failure congestive [Fatal]
  - Cardiac arrest [Fatal]
  - Type 1 diabetes mellitus [Fatal]
  - Emphysema [Fatal]
  - Glomerular filtration rate decreased [Unknown]
  - Blood creatinine increased [Unknown]
